FAERS Safety Report 8286198-6 (Version None)
Quarter: 2012Q2

REPORT INFORMATION
  Report Type: 
  Country: None (occurrence: None)
  Receive Date: 20120416
  Receipt Date: 20120411
  Transmission Date: 20120825
  Serious: No
  Sender: FDA-Public Use
  Company Number: US-PFIZER INC-2012090932

PATIENT
  Sex: Female

DRUGS (18)
  1. ADDERALL 5 [Concomitant]
     Indication: INTERVERTEBRAL DISC PROTRUSION
     Dosage: UNK
  2. ADDERALL 5 [Concomitant]
  3. FENTANYL [Concomitant]
  4. CYMBALTA [Concomitant]
     Indication: DEPRESSION
     Dosage: UNK
  5. NEURONTIN [Concomitant]
     Indication: NERVE INJURY
     Dosage: UNK
  6. TRAZODONE [Concomitant]
     Indication: INTERVERTEBRAL DISC PROTRUSION
     Dosage: UNK
  7. FLEXERIL [Concomitant]
  8. MOTRIN [Concomitant]
     Indication: ARTHRITIS
     Dosage: UNK
  9. FLEXERIL [Concomitant]
     Indication: INTERVERTEBRAL DISC PROTRUSION
     Dosage: UNK
  10. LIDODERM [Concomitant]
  11. PROTONIX [Suspect]
     Indication: POSTOPERATIVE CARE
     Dosage: 40 MG, 1X/DAY
     Route: 048
     Dates: start: 20080801
  12. VICODIN [Concomitant]
  13. KLONOPIN [Concomitant]
     Indication: INTERVERTEBRAL DISC PROTRUSION
     Dosage: UNK
  14. TRAZODONE [Concomitant]
  15. FENTANYL [Concomitant]
     Indication: INTERVERTEBRAL DISC PROTRUSION
     Dosage: UNK
  16. LIDODERM [Concomitant]
     Indication: INTERVERTEBRAL DISC PROTRUSION
     Dosage: UNK
  17. KLONOPIN [Concomitant]
  18. VICODIN [Concomitant]
     Indication: INTERVERTEBRAL DISC PROTRUSION
     Dosage: UNK

REACTIONS (1)
  - WEIGHT INCREASED [None]
